FAERS Safety Report 7892591-3 (Version None)
Quarter: 2011Q4

REPORT INFORMATION
  Report Type: 
  Country: None (occurrence: None)
  Receive Date: 20111102
  Receipt Date: 20111017
  Transmission Date: 20120403
  Serious: Yes (Other)
  Sender: FDA-Public Use
  Company Number: B0758517A

PATIENT
  Age: 55 Year
  Sex: Female
  Weight: 60.8727 kg

DRUGS (6)
  1. BUDESONIDE [Concomitant]
  2. FLUTICASONE PROPIONATE+SALMETEROL XINAFOATE (FLUTICASONE+SALMETEROL) [Suspect]
     Indication: ASTHMA
     Dosage: 500 MCG /TWICE PER DAY / INHALED
     Route: 055
  3. ZIDOVUDINE [Concomitant]
  4. LOPINAVIR [Concomitant]
  5. LAMIVUDINE [Concomitant]
  6. RITONAVIR [Suspect]
     Indication: HIV INFECTION
     Dosage: 50 MG /FOUR TIMES PER DAY /

REACTIONS (1)
  - CUSHING'S SYNDROME [None]
